FAERS Safety Report 19117828 (Version 2)
Quarter: 2021Q2

REPORT INFORMATION
  Report Type: Spontaneous
  Country: PT (occurrence: PT)
  Receive Date: 20210409
  Receipt Date: 20210629
  Transmission Date: 20210717
  Serious: Yes (Hospitalization, Other)
  Sender: FDA-Public Use
  Company Number: PT-PFIZER INC-2021332600

PATIENT
  Age: 78 Year
  Weight: 70 kg

DRUGS (1)
  1. FRAGMIN [Suspect]
     Active Substance: DALTEPARIN SODIUM
     Indication: EMBOLISM
     Dosage: 5000 IU, DAILY (EVERY 24 HOURS)
     Route: 058

REACTIONS (1)
  - Haematoma muscle [Unknown]

NARRATIVE: CASE EVENT DATE: 20210303
